FAERS Safety Report 20691182 (Version 1)
Quarter: 2022Q2

REPORT INFORMATION
  Report Type: Spontaneous
  Country: US (occurrence: US)
  Receive Date: 20220408
  Receipt Date: 20220408
  Transmission Date: 20220721
  Serious: No
  Sender: FDA-Public Use
  Company Number: US-INTRA-CELLULAR THERAPIES, INC.-2022ICT00154

PATIENT
  Age: 37 Year
  Sex: Female
  Weight: 83.447 kg

DRUGS (6)
  1. CAPLYTA [Suspect]
     Active Substance: LUMATEPERONE
     Indication: Depression
     Dosage: 42 MG, 1X/DAY, AT NIGHTTIME
     Route: 048
     Dates: start: 20220221
  2. CLONAZEPAM [Concomitant]
     Active Substance: CLONAZEPAM
     Dosage: ^1-2 PER DAY^ AS NEEDED,
     Dates: start: 20220221
  3. CLONAZEPAM [Concomitant]
     Active Substance: CLONAZEPAM
     Dosage: ^HALF A PILL^ AS NEEDED
     Dates: start: 20220221
  4. PROZAC [Concomitant]
     Active Substance: FLUOXETINE HYDROCHLORIDE
     Dosage: 20 MG, 1X/DAY
  5. SPIRONOLACTONE [Concomitant]
     Active Substance: SPIRONOLACTONE
     Dosage: 50 MG, 1X/DAY
  6. ONE-A-DAY MULTIVITAMIN [Concomitant]

REACTIONS (3)
  - Feeling abnormal [Recovering/Resolving]
  - Off label use [Not Recovered/Not Resolved]
  - Dizziness [Recovering/Resolving]

NARRATIVE: CASE EVENT DATE: 20220221
